FAERS Safety Report 25128252 (Version 1)
Quarter: 2025Q1

REPORT INFORMATION
  Report Type: Spontaneous
  Country: JP (occurrence: JP)
  Receive Date: 20250327
  Receipt Date: 20250327
  Transmission Date: 20250409
  Serious: Yes (Hospitalization)
  Sender: RK PHARMA
  Company Number: JP-RK PHARMA, INC-20250300039

PATIENT

DRUGS (6)
  1. CARBAMAZEPINE [Suspect]
     Active Substance: CARBAMAZEPINE
     Indication: Trigeminal neuralgia
     Route: 065
  2. CARBAMAZEPINE [Suspect]
     Active Substance: CARBAMAZEPINE
     Route: 065
  3. EDOXABAN [Concomitant]
     Active Substance: EDOXABAN
  4. ACETAMINOPHEN\TRAMADOL HYDROCHLORIDE [Concomitant]
     Active Substance: ACETAMINOPHEN\TRAMADOL HYDROCHLORIDE
  5. BISOPROLOL [Concomitant]
     Active Substance: BISOPROLOL
  6. PREGABALIN [Concomitant]
     Active Substance: PREGABALIN

REACTIONS (2)
  - Vertigo [Recovered/Resolved]
  - Toxicity to various agents [Recovered/Resolved]
